FAERS Safety Report 10090183 (Version 2)
Quarter: 2014Q2

REPORT INFORMATION
  Report Type: Report from Study
  Country: KR (occurrence: KR)
  Receive Date: 20140421
  Receipt Date: 20140505
  Transmission Date: 20141212
  Serious: Yes (Death, Hospitalization)
  Sender: FDA-Public Use
  Company Number: KR-SA-2014SA043576

PATIENT
  Age: 65 Year
  Sex: Female
  Weight: 45 kg

DRUGS (5)
  1. LANTUS [Suspect]
     Indication: DIABETES MELLITUS
     Dosage: DOSE:12 UNIT(S)
     Route: 058
     Dates: start: 20140328, end: 20140408
  2. AMARYL M [Suspect]
     Indication: DIABETES MELLITUS
     Route: 048
     Dates: start: 20140328, end: 201404
  3. HUMALOG N [Suspect]
     Indication: DIABETES MELLITUS
     Route: 058
     Dates: start: 20140409
  4. HUMALOG [Suspect]
     Indication: DIABETES MELLITUS
     Route: 058
     Dates: start: 20140409
  5. VANCOMYCIN [Concomitant]
     Route: 048

REACTIONS (6)
  - Cardiac arrest [Fatal]
  - Chest pain [Unknown]
  - Dyspnoea [Unknown]
  - Pleural effusion [Unknown]
  - Pulmonary oedema [Unknown]
  - Blood glucose increased [Unknown]
